FAERS Safety Report 24978910 (Version 1)
Quarter: 2025Q1

REPORT INFORMATION
  Report Type: Spontaneous
  Country: US (occurrence: US)
  Receive Date: 20250218
  Receipt Date: 20250218
  Transmission Date: 20250409
  Serious: Yes (Other)
  Sender: AUROBINDO
  Company Number: US-AUROBINDO-AUR-APL-2024-063499

PATIENT
  Age: 65 Year
  Sex: Female

DRUGS (3)
  1. TRIAMCINOLONE [Suspect]
     Active Substance: TRIAMCINOLONE
     Indication: Brachioradial pruritus
     Route: 065
  2. CAPSAICIN [Suspect]
     Active Substance: CAPSAICIN
     Indication: Brachioradial pruritus
     Dosage: 0.1 %, 3 TIMES A DAY
     Route: 065
  3. PRAMOXINE [Suspect]
     Active Substance: PRAMOXINE
     Indication: Brachioradial pruritus
     Route: 065

REACTIONS (1)
  - Drug ineffective [Unknown]
